FAERS Safety Report 6402664-X (Version None)
Quarter: 2009Q4

REPORT INFORMATION
  Report Type: 
  Country: None (occurrence: None)
  Receive Date: 20091009
  Receipt Date: 20090930
  Transmission Date: 20100525
  Serious: Yes (Other)
  Sender: FDA-Public Use
  Company Number: ADR34292009

PATIENT
  Age: 53 Year
  Sex: Male

DRUGS (3)
  1. CIPROFLOXACIN [Suspect]
     Indication: LOWER RESPIRATORY TRACT INFECTION
     Dosage: 500 MG, ORAL
     Route: 048
     Dates: start: 20080122, end: 20080125
  2. PREDNISOLONE [Concomitant]
  3. ZOLPIDEM [Concomitant]

REACTIONS (2)
  - EMOTIONAL DISTRESS [None]
  - TONGUE DISCOLOURATION [None]
